FAERS Safety Report 9026490 (Version 1)
Quarter: 2013Q1

REPORT INFORMATION
  Report Type: Spontaneous
  Country: GB (occurrence: None)
  Receive Date: 20130107
  Receipt Date: 20130107
  Transmission Date: 20140127
  Serious: Yes (Life-Threatening, Hospitalization)
  Sender: FDA-Public Use
  Company Number: 2012-23258

PATIENT
  Age: 6 Month
  Sex: Female
  Weight: 8 kg

DRUGS (4)
  1. RANITIDINE HYDROCHLORIDE [Suspect]
     Indication: PRODUCT USED FOR UNKNOWN INDICATION
     Route: 048
     Dates: start: 20121123
  2. SYNACTHEN DEPOSITO (TETRACOSACTIDE ACETATE) [Concomitant]
  3. VIGABATRIN (VIGABATRIN) [Concomitant]
  4. LACTULOSE (LACTULOSE) [Concomitant]

REACTIONS (3)
  - Bradycardia [None]
  - Irritability [None]
  - Pallor [None]
